FAERS Safety Report 25795192 (Version 2)
Quarter: 2025Q4

REPORT INFORMATION
  Report Type: Other
  Country: CA (occurrence: CA)
  Receive Date: 20250912
  Receipt Date: 20251103
  Transmission Date: 20260118
  Serious: Yes (Death, Other)
  Sender: PFIZER
  Company Number: CA-PFIZER INC-202500179532

PATIENT
  Age: 77 Year
  Sex: Male

DRUGS (8)
  1. METHOTREXATE SODIUM [Suspect]
     Active Substance: METHOTREXATE SODIUM
     Indication: Myelodysplastic syndrome
     Dosage: UP TO 25MG SC WEEKLY
     Route: 058
  2. TOFACITINIB CITRATE [Suspect]
     Active Substance: TOFACITINIB CITRATE
     Indication: Myelodysplastic syndrome
     Dosage: 5 MILLIGRAM, 2 DOSE DAILY (TARGETED IMMUNOTHERAPY)
     Route: 065
  3. AZATHIOPRINE [Suspect]
     Active Substance: AZATHIOPRINE
     Indication: Myelodysplastic syndrome
     Dosage: 150 MILLIGRAM, QD
     Route: 065
  4. CYCLOSPORINE [Suspect]
     Active Substance: CYCLOSPORINE
     Indication: Myelodysplastic syndrome
     Dosage: 2.5 MILLIGRAM PER KILOGRAM, QD
     Route: 065
  5. KEVZARA [Suspect]
     Active Substance: SARILUMAB
     Indication: Myelodysplastic syndrome
     Dosage: 200 MILLIGRAM, 1 DOSE 2 WEEKS
     Route: 058
  6. MYCOPHENOLATE MOFETIL [Suspect]
     Active Substance: MYCOPHENOLATE MOFETIL
     Indication: Myelodysplastic syndrome
     Dosage: 1.5 GRAM, BID
     Route: 065
  7. PREDNISONE [Suspect]
     Active Substance: PREDNISONE
     Indication: Myelodysplastic syndrome
     Dosage: WEEKLY (HIGH DOSE PREDNISONE (~40MG/D) AND TAPERED TO 15MG/D OR LOWER)
     Route: 065
  8. SARILUMAB [Suspect]
     Active Substance: SARILUMAB
     Indication: Myelodysplastic syndrome
     Dosage: UNK

REACTIONS (6)
  - COVID-19 pneumonia [Fatal]
  - Mycobacterium chelonae infection [Fatal]
  - Pneumonia [Fatal]
  - Off label use [Fatal]
  - Drug ineffective for unapproved indication [Fatal]
  - Off label use [Unknown]
